FAERS Safety Report 5115436-3 (Version None)
Quarter: 2006Q3

REPORT INFORMATION
  Report Type: 
  Country: None (occurrence: None)
  Receive Date: 20060922
  Receipt Date: 20060901
  Transmission Date: 20061208
  Serious: Yes (Other)
  Sender: FDA-Public Use
  Company Number: 2006112434

PATIENT
  Sex: Male

DRUGS (2)
  1. TAHOR (ATORVASTATIN) [Suspect]
     Dosage: 20 MG (1 D)
  2. DRUG, UNSPECIFIED [Concomitant]

REACTIONS (2)
  - MUSCULOSKELETAL PAIN [None]
  - TENDON RUPTURE [None]
